FAERS Safety Report 9110707 (Version 1)
Quarter: 2013Q1

REPORT INFORMATION
  Report Type: Spontaneous
  Country: US (occurrence: US)
  Receive Date: 20130219
  Receipt Date: 20130219
  Transmission Date: 20140127
  Serious: No
  Sender: FDA-Public Use
  Company Number: US-BRISTOL-MYERS SQUIBB COMPANY-17027004

PATIENT
  Age: 63 Year
  Sex: Male
  Weight: 126.98 kg

DRUGS (3)
  1. ABATACEPT SUBQ INJECTION 125MG/ML [Suspect]
     Indication: RHEUMATOID ARTHRITIS
     Dosage: 1DF=125MG/ML
     Route: 058
     Dates: start: 20120308
  2. CELEBREX [Concomitant]
  3. MULTIVITAMIN [Concomitant]

REACTIONS (2)
  - Cough [Unknown]
  - Drug ineffective [Unknown]
